FAERS Safety Report 13910705 (Version 1)
Quarter: 2017Q3

REPORT INFORMATION
  Report Type: Spontaneous
  Country: DE (occurrence: DE)
  Receive Date: 20170828
  Receipt Date: 20170828
  Transmission Date: 20171127
  Serious: Yes (Congenital Anomaly)
  Sender: FDA-Public Use
  Company Number: DE-TEVA-798496GER

PATIENT
  Age: 1 Day
  Sex: Male
  Weight: 3.97 kg

DRUGS (11)
  1. LEVETIRACETAM. [Suspect]
     Active Substance: LEVETIRACETAM
     Indication: EPILEPSY
     Dosage: 1000 MILLIGRAM DAILY;
     Route: 064
     Dates: start: 20160414, end: 20170122
  2. VITAMIN D [Concomitant]
     Active Substance: CHOLECALCIFEROL
     Indication: VITAMIN D DEFICIENCY
     Dosage: 1000 IU (INTERNATIONAL UNIT) DAILY;
     Route: 064
  3. FEMIBION SCHWANGERSCHAFT 1 [Concomitant]
     Indication: PROPHYLAXIS OF NEURAL TUBE DEFECT
     Dosage: 0.8 MG/D (UP TO 0.4)
     Route: 064
     Dates: start: 20160414, end: 20160706
  4. SERTRALINE [Suspect]
     Active Substance: SERTRALINE HYDROCHLORIDE
     Indication: DEPRESSION
     Dosage: 50 MILLIGRAM DAILY;
     Route: 064
     Dates: start: 20160414, end: 20170122
  5. EFEROX [Concomitant]
     Active Substance: LEVOTHYROXINE SODIUM
     Indication: HYPOTHYROIDISM
     Dosage: 112 MICROGRAM DAILY;
     Route: 064
     Dates: start: 20160414, end: 20170122
  6. BALDRIAN DISPERT [Concomitant]
     Active Substance: HERBALS
     Indication: SLEEP DISORDER
     Dosage: 45 MILLIGRAM DAILY;
     Route: 064
  7. INIMUR MYKO [Concomitant]
     Indication: VULVOVAGINAL MYCOTIC INFECTION
     Route: 064
  8. NYSTATIN. [Concomitant]
     Active Substance: NYSTATIN
     Indication: VULVOVAGINAL MYCOTIC INFECTION
     Route: 064
  9. OXYTOCIN. [Concomitant]
     Active Substance: OXYTOCIN
     Indication: LABOUR INDUCTION
     Route: 064
     Dates: start: 20170122, end: 20170122
  10. WICK INHALIERSTIFT N [Concomitant]
     Indication: VIRAL UPPER RESPIRATORY TRACT INFECTION
     Route: 064
     Dates: start: 20160609, end: 20160609
  11. BEPANTHEN [Concomitant]
     Active Substance: DEXPANTHENOL
     Indication: NASAL DISCOMFORT
     Route: 064

REACTIONS (1)
  - Cerebral haemorrhage neonatal [Unknown]

NARRATIVE: CASE EVENT DATE: 20170122
